FAERS Safety Report 6656232-5 (Version None)
Quarter: 2010Q1

REPORT INFORMATION
  Report Type: 
  Country: None (occurrence: None)
  Receive Date: 20100329
  Receipt Date: 20100319
  Transmission Date: 20100710
  Serious: Yes (Hospitalization)
  Sender: FDA-Public Use
  Company Number: JP-MERCK-1003USA02240

PATIENT
  Age: 27 Year
  Sex: Male

DRUGS (13)
  1. SINGULAIR [Suspect]
     Route: 048
     Dates: start: 20100118, end: 20100121
  2. SULBACILLIN [Suspect]
     Indication: PNEUMONIA
     Route: 042
     Dates: start: 20100112, end: 20100118
  3. LANSOPRAZOLE [Suspect]
     Route: 048
     Dates: start: 20100114, end: 20100121
  4. UNIPHYL LA [Suspect]
     Route: 048
     Dates: start: 20100118, end: 20100121
  5. MUCODYNE [Suspect]
     Route: 055
     Dates: start: 20100112, end: 20100121
  6. MUCOSOLVAN [Concomitant]
     Route: 048
     Dates: start: 20100112, end: 20100121
  7. MEDICON [Concomitant]
     Route: 048
     Dates: start: 20100112, end: 20100121
  8. ADOAIR [Concomitant]
     Route: 055
     Dates: start: 20100116
  9. ACTIT [Concomitant]
     Route: 042
  10. LACTEC [Concomitant]
     Route: 042
     Dates: start: 20100112, end: 20100118
  11. MEPTIN [Concomitant]
     Route: 055
  12. INTAL [Concomitant]
     Route: 055
     Dates: start: 20100112, end: 20100119
  13. DECADRON [Concomitant]
     Route: 042
     Dates: start: 20100112, end: 20100116

REACTIONS (1)
  - DRUG ERUPTION [None]
